FAERS Safety Report 23086168 (Version 1)
Quarter: 2023Q4

REPORT INFORMATION
  Report Type: Report from Study
  Country: US (occurrence: US)
  Receive Date: 20231019
  Receipt Date: 20231019
  Transmission Date: 20240109
  Serious: Yes (Other)
  Sender: FDA-Public Use
  Company Number: US-JAZZ PHARMACEUTICALS-2023-US-014612

PATIENT
  Sex: Female

DRUGS (3)
  1. XYWAV [Suspect]
     Active Substance: CALCIUM OXYBATE\MAGNESIUM OXYBATE\POTASSIUM OXYBATE\SODIUM OXYBATE
     Indication: Narcolepsy
     Dosage: 4.5 GRAM, BID
     Dates: start: 20191115
  2. XYWAV [Suspect]
     Active Substance: CALCIUM OXYBATE\MAGNESIUM OXYBATE\POTASSIUM OXYBATE\SODIUM OXYBATE
     Indication: Cataplexy
     Dosage: 4G TWICE NIGHTLY
  3. XYWAV [Suspect]
     Active Substance: CALCIUM OXYBATE\MAGNESIUM OXYBATE\POTASSIUM OXYBATE\SODIUM OXYBATE
     Indication: Somnolence

REACTIONS (15)
  - Systemic lupus erythematosus [Unknown]
  - Apnoea [Unknown]
  - Connective tissue disorder [Unknown]
  - Fibromyalgia [Unknown]
  - Anaemia [Unknown]
  - Vitamin D deficiency [Unknown]
  - Restless legs syndrome [Unknown]
  - Restless arm syndrome [Unknown]
  - Dry mouth [Unknown]
  - Hyperhidrosis [Unknown]
  - Feeling abnormal [Unknown]
  - Feeling jittery [Unknown]
  - Product administration interrupted [Unknown]
  - Off label use [Unknown]
  - Intentional dose omission [Unknown]
